FAERS Safety Report 12188419 (Version 1)
Quarter: 2016Q1

REPORT INFORMATION
  Report Type: Spontaneous
  Country: CA (occurrence: CA)
  Receive Date: 20160317
  Receipt Date: 20160317
  Transmission Date: 20160526
  Serious: Yes (Hospitalization)
  Sender: FDA-Public Use
  Company Number: CA-MYLANLABS-2016M1011236

PATIENT

DRUGS (3)
  1. DEXAMETHASONE. [Suspect]
     Active Substance: DEXAMETHASONE
     Indication: PRODUCT USED FOR UNKNOWN INDICATION
     Dosage: 8MG
     Route: 048
  2. PREDNISONE. [Suspect]
     Active Substance: PREDNISONE
     Indication: PRODUCT USED FOR UNKNOWN INDICATION
     Dosage: CONTINUOUS 5MG
     Route: 048
  3. DOCETAXEL. [Concomitant]
     Active Substance: DOCETAXEL
     Indication: GENITOURINARY TRACT NEOPLASM
     Route: 065

REACTIONS (1)
  - Hyperosmolar hyperglycaemic state [Unknown]
